FAERS Safety Report 21641477 (Version 5)
Quarter: 2023Q2

REPORT INFORMATION
  Report Type: Report from Study
  Country: US (occurrence: US)
  Receive Date: 20221125
  Receipt Date: 20230623
  Transmission Date: 20230722
  Serious: Yes (Hospitalization, Other)
  Sender: FDA-Public Use
  Company Number: US-002147023-NVSC2022US264164

PATIENT
  Age: 89 Year
  Sex: Female

DRUGS (2)
  1. PROMACTA [Suspect]
     Active Substance: ELTROMBOPAG OLAMINE
     Indication: Product used for unknown indication
     Dosage: 50 MG
     Route: 065
  2. PROMACTA [Suspect]
     Active Substance: ELTROMBOPAG OLAMINE
     Dosage: 12.5 MG
     Route: 065

REACTIONS (9)
  - Hypoacusis [Unknown]
  - COVID-19 [Unknown]
  - Haemorrhage [Unknown]
  - Cardiac disorder [Unknown]
  - Lung disorder [Unknown]
  - Throat irritation [Unknown]
  - Respiratory disorder [Unknown]
  - Drug intolerance [Unknown]
  - Platelet count decreased [Unknown]

NARRATIVE: CASE EVENT DATE: 20230121
